FAERS Safety Report 19468258 (Version 1)
Quarter: 2021Q2

REPORT INFORMATION
  Report Type: Report from Study
  Country: CN (occurrence: CN)
  Receive Date: 20210628
  Receipt Date: 20210628
  Transmission Date: 20210717
  Serious: Yes (Other)
  Sender: FDA-Public Use
  Company Number: CN-ASTRAZENECA-2019SF73132

PATIENT
  Age: 20599 Day
  Sex: Male

DRUGS (13)
  1. VALSARTAN CAPSULES [Concomitant]
     Indication: HYPERTENSION
     Dates: start: 20180104
  2. ACARBOSE. [Concomitant]
     Active Substance: ACARBOSE
     Indication: DIABETES MELLITUS
     Dates: start: 20170427
  3. METFORMIN HYDROCHLORIDE. [Concomitant]
     Active Substance: METFORMIN HYDROCHLORIDE
     Indication: DIABETES MELLITUS
     Dates: start: 20171229
  4. DAPAGLIFLOZIN. [Suspect]
     Active Substance: DAPAGLIFLOZIN
     Indication: TYPE 2 DIABETES MELLITUS
     Route: 048
     Dates: start: 20171227, end: 20180526
  5. ISOSORBIDE MONONITRATE SUSTAIND?RELEASE CAPSULES [Concomitant]
     Dates: start: 20170427
  6. TRIMETAZIDINE HYDROCHLORIDE CAPSULES [Concomitant]
     Dates: start: 20170427
  7. ATORVASTATIN CALCIUM. [Concomitant]
     Active Substance: ATORVASTATIN CALCIUM
     Dates: start: 20171221
  8. NORVASC [Concomitant]
     Active Substance: AMLODIPINE BESYLATE
     Indication: HYPERTENSION
     Dates: start: 20170427
  9. METOPROLOL SUCCINATE. [Concomitant]
     Active Substance: METOPROLOL SUCCINATE
     Indication: HYPERTENSION
     Dates: start: 20180104
  10. MECOBALAMIN CAPSULES [Concomitant]
     Dates: start: 20170427
  11. INSULIN DETEMIR INJECTION [Concomitant]
     Indication: DIABETES MELLITUS
     Dosage: 24 U DAILY
     Dates: start: 20171227
  12. HYDROCHLOROTHIAZIDE TABLETS [Concomitant]
     Active Substance: HYDROCHLOROTHIAZIDE
     Indication: HYPERTENSION
     Dates: start: 20180104
  13. ASPIRIN ENTERIC?COATED TABLETS [Concomitant]
     Active Substance: ASPIRIN
     Dates: start: 20171221

REACTIONS (1)
  - Diabetic ketosis [Not Recovered/Not Resolved]

NARRATIVE: CASE EVENT DATE: 20180213
